FAERS Safety Report 6143957-3 (Version None)
Quarter: 2009Q2

REPORT INFORMATION
  Report Type: 
  Country: None (occurrence: None)
  Receive Date: 20090406
  Receipt Date: 20090402
  Transmission Date: 20091009
  Serious: Yes (Death, Other)
  Sender: FDA-Public Use
  Company Number: US-JNJFOC-20081101768

PATIENT
  Sex: Male
  Weight: 128.1 kg

DRUGS (7)
  1. RISPERDAL CONSTA [Suspect]
     Indication: SCHIZOAFFECTIVE DISORDER
     Route: 030
  2. BYETTA [Concomitant]
     Route: 065
  3. BENADRYL [Concomitant]
     Route: 065
  4. LEXAPRO [Concomitant]
     Route: 065
  5. ACTID PLUS [Concomitant]
     Route: 065
  6. METFORMIN HCL [Concomitant]
     Route: 065
  7. ABILIFY [Concomitant]
     Route: 065

REACTIONS (4)
  - ABDOMINAL PAIN UPPER [None]
  - PULMONARY EMBOLISM [None]
  - SYNCOPE [None]
  - THROMBOSIS [None]
